FAERS Safety Report 6430042-6 (Version None)
Quarter: 2009Q4

REPORT INFORMATION
  Report Type: 
  Country: None (occurrence: None)
  Receive Date: 20091103
  Receipt Date: 20091019
  Transmission Date: 20100525
  Serious: Yes (Hospitalization)
  Sender: FDA-Public Use
  Company Number: 02100-JPN-04-0270

PATIENT
  Age: 69 Year
  Sex: Male
  Weight: 60 kg

DRUGS (4)
  1. PLETAL [Suspect]
     Indication: CEREBRAL INFARCTION
     Dosage: 81 MG, QD, ORAL
     Route: 048
     Dates: start: 20040426, end: 20080509
  2. MUCOSTA (REBAMIPIDE) TABLET [Concomitant]
  3. BEZATOL SR (BEZAFIBRATE) TAB ER [Concomitant]
  4. COVERSYL (PERINDOPRIL) TABLET [Concomitant]

REACTIONS (4)
  - BLOOD GLUCOSE INCREASED [None]
  - GLYCOSYLATED HAEMOGLOBIN INCREASED [None]
  - INTRAOCULAR PRESSURE INCREASED [None]
  - VITREOUS HAEMORRHAGE [None]
